FAERS Safety Report 21077898 (Version 1)
Quarter: 2022Q3

REPORT INFORMATION
  Report Type: Spontaneous
  Country: CN (occurrence: CN)
  Receive Date: 20220713
  Receipt Date: 20220713
  Transmission Date: 20221026
  Serious: Yes (Other)
  Sender: FDA-Public Use
  Company Number: None

PATIENT
  Age: 71 Year
  Sex: Female
  Weight: 57 kg

DRUGS (8)
  1. CYCLOPHOSPHAMIDE [Suspect]
     Active Substance: CYCLOPHOSPHAMIDE
     Indication: Breast cancer female
     Dosage: QD (1ST CHEMOTHERAPY: ENDOXAN CTX + NS)
     Route: 042
  2. CYCLOPHOSPHAMIDE [Suspect]
     Active Substance: CYCLOPHOSPHAMIDE
     Dosage: 800 MG, QD, POWDER INJECTION (2ND CHEMOTHERAPY: ENDOXAN CTX 800 MG + NS 40ML)
     Route: 042
     Dates: start: 20220518, end: 20220518
  3. SODIUM CHLORIDE [Suspect]
     Active Substance: SODIUM CHLORIDE
     Indication: Medication dilution
     Dosage: QD (1ST CHEMOTHERAPY: ENDOXAN CTX + NS)
     Route: 042
  4. SODIUM CHLORIDE [Suspect]
     Active Substance: SODIUM CHLORIDE
     Dosage: QD (1ST CHEMOTHERAPY: PHARMORUBICIN + NS)
     Route: 041
  5. SODIUM CHLORIDE [Suspect]
     Active Substance: SODIUM CHLORIDE
     Dosage: 40 ML, QD (2ND CHEMOTHERAPY: ENDOXAN CTX 800 MG + NS 40ML)
     Route: 042
     Dates: start: 20220518, end: 20220518
  6. SODIUM CHLORIDE [Suspect]
     Active Substance: SODIUM CHLORIDE
     Dosage: 100 ML, QD (2ND CHEMOTHERAPY: PHARMORUBICIN 120 MG + NS 100 ML)
     Route: 041
     Dates: start: 20220518, end: 20220518
  7. EPIRUBICIN [Suspect]
     Active Substance: EPIRUBICIN
     Indication: Breast cancer female
     Dosage: QD (1ST CHEMOTHERAPY: PHARMORUBICIN + NS)
     Route: 041
  8. EPIRUBICIN [Suspect]
     Active Substance: EPIRUBICIN
     Dosage: 120 MG, QD (2ND CHEMOTHERAPY: PHARMORUBICIN 120 MG + NS 100 ML)
     Route: 041
     Dates: start: 20220518, end: 20220518

REACTIONS (2)
  - White blood cell count decreased [Recovered/Resolved]
  - Agranulocytosis [Recovered/Resolved]

NARRATIVE: CASE EVENT DATE: 20220530
